FAERS Safety Report 17769282 (Version 1)
Quarter: 2020Q2

REPORT INFORMATION
  Report Type: Spontaneous
  Country: US (occurrence: US)
  Receive Date: 20200511
  Receipt Date: 20200511
  Transmission Date: 20200714
  Serious: Yes (Disabling)
  Sender: FDA-Public Use
  Company Number: None

PATIENT
  Age: 46 Year
  Sex: Female
  Weight: 63.5 kg

DRUGS (1)
  1. CLONAZEPAM. [Suspect]
     Active Substance: CLONAZEPAM
     Indication: PANIC ATTACK
     Route: 048
     Dates: start: 20000401, end: 20190401

REACTIONS (5)
  - Anxiety [None]
  - Impaired quality of life [None]
  - Asthenia [None]
  - Mental impairment [None]
  - Withdrawal syndrome [None]

NARRATIVE: CASE EVENT DATE: 20190104
